FAERS Safety Report 20980284 (Version 2)
Quarter: 2022Q3

REPORT INFORMATION
  Report Type: Spontaneous
  Country: TR (occurrence: TR)
  Receive Date: 20220620
  Receipt Date: 20220701
  Transmission Date: 20221027
  Serious: Yes (Hospitalization)
  Sender: FDA-Public Use
  Company Number: TR-NOVOPROD-927316

PATIENT
  Sex: Female
  Weight: 3.27 kg

DRUGS (2)
  1. LEVEMIR [Suspect]
     Active Substance: INSULIN DETEMIR
     Indication: Gestational diabetes
     Dosage: 40 IU, QD (26 IU IN THE MORNING AND 14 IU IN THE EVENING)
     Route: 064
     Dates: end: 20220516
  2. D VIT [Concomitant]
     Indication: Pregnancy
     Dosage: UNK
     Route: 064

REACTIONS (2)
  - Pulmonary oedema neonatal [Recovered/Resolved]
  - Foetal exposure during pregnancy [Recovered/Resolved]

NARRATIVE: CASE EVENT DATE: 20220516
